FAERS Safety Report 24586753 (Version 1)
Quarter: 2024Q4

REPORT INFORMATION
  Report Type: Spontaneous
  Country: CN (occurrence: CN)
  Receive Date: 20241107
  Receipt Date: 20241107
  Transmission Date: 20250114
  Serious: Yes (Hospitalization)
  Sender: BEIGENE
  Company Number: CN-BEIGENE-BGN-2024-017410

PATIENT

DRUGS (4)
  1. TISLELIZUMAB [Suspect]
     Active Substance: TISLELIZUMAB
     Indication: Breast cancer
     Dosage: 200 MILLIGRAM
     Route: 041
     Dates: start: 20240813
  2. TISLELIZUMAB [Suspect]
     Active Substance: TISLELIZUMAB
     Dosage: 200 MILLIGRAM
     Route: 041
     Dates: start: 20240906
  3. TORIPALIMAB [Suspect]
     Active Substance: TORIPALIMAB
     Indication: Breast cancer
     Dosage: 240 MILLIGRAM
     Route: 041
     Dates: start: 20240926
  4. PACLITAXEL [Concomitant]
     Active Substance: PACLITAXEL
     Indication: Breast cancer
     Dosage: 400 MILLIGRAM
     Dates: start: 20240710

REACTIONS (1)
  - Hepatic enzyme increased [Recovered/Resolved]

NARRATIVE: CASE EVENT DATE: 20241021
